FAERS Safety Report 8488146-2 (Version None)
Quarter: 2012Q3

REPORT INFORMATION
  Report Type: 
  Country: None (occurrence: None)
  Receive Date: 20120705
  Receipt Date: 20120702
  Transmission Date: 20120928
  Serious: Yes (Other)
  Sender: FDA-Public Use
  Company Number: PHHO2012FR009492

PATIENT
  Sex: Male
  Weight: 88 kg

DRUGS (3)
  1. PREDNISONE [Concomitant]
     Indication: ABDOMINAL PAIN UPPER
     Dosage: UNK
     Dates: start: 20120614
  2. RITUXIMAB [Suspect]
     Indication: NON-HODGKIN'S LYMPHOMA
     Dosage: UNK
     Dates: start: 20120614
  3. AFINITOR [Suspect]
     Indication: NON-HODGKIN'S LYMPHOMA
     Dosage: 5 MG, UNK
     Route: 048
     Dates: start: 20120614

REACTIONS (1)
  - HYPERSENSITIVITY [None]
